FAERS Safety Report 6287207-6 (Version None)
Quarter: 2009Q3

REPORT INFORMATION
  Report Type: 
  Country: None (occurrence: None)
  Receive Date: 20090728
  Receipt Date: 20060407
  Transmission Date: 20100115
  Serious: Yes (Death, Other)
  Sender: FDA-Public Use
  Company Number: DE-PFIZER INC-2006006528

PATIENT
  Age: 43 Year

DRUGS (8)
  1. LYRICA [Suspect]
     Indication: POST HERPETIC NEURALGIA
     Dosage: 150 MG, 1X/DAY
     Route: 048
     Dates: start: 20051217, end: 20051224
  2. LYRICA [Interacting]
     Indication: NEURALGIA
  3. CARBAMAZEPINE [Interacting]
     Indication: POST HERPETIC NEURALGIA
     Dosage: 400 MG, 1X/DAY
     Route: 048
     Dates: start: 20040401, end: 20051223
  4. CARBAMAZEPINE [Interacting]
     Indication: NEURALGIA
  5. HYDROMORPHONE HCL [Concomitant]
     Route: 048
     Dates: start: 20051217, end: 20051224
  6. AMITRIPTYLINE HCL [Concomitant]
     Route: 048
     Dates: start: 20040401
  7. CHEMOTHERAPY NOS [Concomitant]
     Route: 065
  8. OXYCODONE [Concomitant]
     Route: 065
     Dates: end: 20051217

REACTIONS (8)
  - CONVULSION [None]
  - DRUG INTERACTION [None]
  - HYPOXIA [None]
  - HYPOXIC ENCEPHALOPATHY [None]
  - MULTI-ORGAN FAILURE [None]
  - PNEUMONIA ASPIRATION [None]
  - RENAL FAILURE [None]
  - RESPIRATORY FAILURE [None]
